FAERS Safety Report 7206903-7 (Version None)
Quarter: 2011Q1

REPORT INFORMATION
  Report Type: 
  Country: None (occurrence: None)
  Receive Date: 20110103
  Receipt Date: 20101227
  Transmission Date: 20110831
  Serious: Yes (Death, Other)
  Sender: FDA-Public Use
  Company Number: US-GENZYME-FLUD-1000568

PATIENT

DRUGS (8)
  1. TACROLIMUS [Concomitant]
     Indication: PROPHYLAXIS AGAINST GRAFT VERSUS HOST DISEASE
     Dosage: UNK
     Route: 042
  2. ALEMTUZUMAB [Suspect]
     Indication: STEM CELL TRANSPLANT
     Dosage: 20 MG, QDX5
     Route: 065
  3. BUSULFAN [Suspect]
     Indication: STEM CELL TRANSPLANT
     Dosage: 0.5 MG/KG, ONCE, WITHIN 8 DAYS PRIOR TO CONDITIOINING
     Route: 042
  4. FLUDARA [Suspect]
     Indication: STEM CELL TRANSPLANT
     Dosage: 25 MG/M2, QDX5
     Route: 065
  5. CLONAZEPAM [Concomitant]
     Dosage: 1 MG, TID, EVENING OF DAY -7 THROUGH DAY -2
     Route: 065
  6. TACROLIMUS [Concomitant]
     Dosage: UNK
     Route: 048
  7. CLONAZEPAM [Concomitant]
     Indication: CONVULSION PROPHYLAXIS
     Dosage: 1 MG, QD
     Route: 065
  8. BUSULFAN [Suspect]
     Dosage: UNK
     Route: 042

REACTIONS (6)
  - DISEASE PROGRESSION [None]
  - PORTAL HYPERTENSION [None]
  - GASTROINTESTINAL HAEMORRHAGE [None]
  - VENOOCCLUSIVE LIVER DISEASE [None]
  - GRAFT VERSUS HOST DISEASE [None]
  - PROGRESSIVE MULTIFOCAL LEUKOENCEPHALOPATHY [None]
